FAERS Safety Report 7019632-X (Version None)
Quarter: 2010Q3

REPORT INFORMATION
  Report Type: 
  Country: None (occurrence: None)
  Receive Date: 20100928
  Receipt Date: 20100928
  Transmission Date: 20110219
  Serious: Yes (Hospitalization)
  Sender: FDA-Public Use
  Company Number: None

PATIENT
  Age: 52 Year
  Sex: Female
  Weight: 53 kg

DRUGS (2)
  1. LISINOPRIL [Suspect]
     Indication: HYPERTENSION
     Dosage: 10MG QDAY PO
     Route: 048
  2. NIFEDIPINE [Suspect]
     Indication: HYPERTENSION
     Dosage: 120 QDAY PO
     Route: 048

REACTIONS (1)
  - ANGIOEDEMA [None]
